FAERS Safety Report 6730666-2 (Version None)
Quarter: 2010Q2

REPORT INFORMATION
  Report Type: 
  Country: None (occurrence: None)
  Receive Date: 20100518
  Receipt Date: 20100504
  Transmission Date: 20101027
  Serious: Yes (Life-Threatening, Hospitalization)
  Sender: FDA-Public Use
  Company Number: SE-GENENTECH-298190

PATIENT
  Sex: Male

DRUGS (9)
  1. LUCENTIS [Suspect]
     Indication: DRUG USE FOR UNKNOWN INDICATION
     Dosage: UNK
     Route: 031
     Dates: start: 20080902, end: 20090902
  2. LUCENTIS [Suspect]
     Dosage: UNK
     Route: 031
     Dates: start: 20090902
  3. TROMBYL [Concomitant]
     Indication: DRUG USE FOR UNKNOWN INDICATION
  4. DOCOSAHEXAENOIC ACID [Concomitant]
     Indication: DRUG USE FOR UNKNOWN INDICATION
  5. EICOSAPENTAENOIC ACID [Concomitant]
     Indication: DRUG USE FOR UNKNOWN INDICATION
  6. GAMMA LINOLENIC ACID [Concomitant]
     Indication: DRUG USE FOR UNKNOWN INDICATION
  7. TOCOPHEROL CONCENTRATE CAP [Concomitant]
     Indication: DRUG USE FOR UNKNOWN INDICATION
  8. METOPROLOL TARTRATE [Concomitant]
     Indication: DRUG USE FOR UNKNOWN INDICATION
  9. DIETARY SUPPLEMENT NOS [Concomitant]
     Indication: DRUG USE FOR UNKNOWN INDICATION

REACTIONS (1)
  - CEREBROVASCULAR ACCIDENT [None]
